FAERS Safety Report 7901717 (Version 9)
Quarter: 2012Q4

REPORT INFORMATION
  Report Type: 
  Country: US (occurrence: US)
  Receive Date: 20110415
  Receipt Date: 20121211
  Transmission Date: 20130627
  Serious: Yes (Life-Threatening, Other)
  Sender: FDA-Public Use
  Company Number: US-ASTRAZENECA-2011SE19745

PATIENT
  Age: 87 Year
  Sex: Male

DRUGS (3)
  1. NEXIUM [Suspect]
     Route: 048
  2. TOPROL XL [Suspect]
     Route: 048
  3. CRESTOR [Suspect]
     Route: 048

REACTIONS (20)
  - Coma [Unknown]
  - Musculoskeletal disorder [Unknown]
  - Spinal disorder [Unknown]
  - Accident [Unknown]
  - Restlessness [Unknown]
  - Fall [Unknown]
  - Glaucoma [Unknown]
  - Gout [Unknown]
  - Hand deformity [Unknown]
  - Adverse event [Unknown]
  - Pain [Unknown]
  - Blood pressure increased [Unknown]
  - Hyperchlorhydria [Unknown]
  - Pyrexia [Unknown]
  - Ulcer [Unknown]
  - Nasopharyngitis [Unknown]
  - Back injury [Unknown]
  - Malaise [Unknown]
  - Gait disturbance [Unknown]
  - Intentional drug misuse [Unknown]
